FAERS Safety Report 10167162 (Version 1)
Quarter: 2014Q2

REPORT INFORMATION
  Report Type: Spontaneous
  Country: US (occurrence: US)
  Receive Date: 20140512
  Receipt Date: 20140512
  Transmission Date: 20141212
  Serious: Yes (Other)
  Sender: FDA-Public Use
  Company Number: US-ACTAVIS-2014-09279

PATIENT
  Age: 83 Year
  Sex: Female
  Weight: 73 kg

DRUGS (3)
  1. ALENDRONATE SODIUM (WATSON LABORATORIES) [Suspect]
     Indication: BONE DENSITY ABNORMAL
     Dosage: 1 DF, 1/WEEK
     Route: 048
     Dates: start: 20140406, end: 20140420
  2. PROPRANOLOL [Concomitant]
     Indication: HYPERTENSION
     Dosage: 120 MG, DAILY
     Route: 048
  3. CENTRUM SILVER                     /02363801/ [Concomitant]
     Indication: SUPPLEMENTATION THERAPY
     Dosage: 1 DF, DAILY
     Route: 048

REACTIONS (2)
  - Haematuria [Not Recovered/Not Resolved]
  - Renal pain [Not Recovered/Not Resolved]
